FAERS Safety Report 5490214-4 (Version None)
Quarter: 2007Q4

REPORT INFORMATION
  Report Type: 
  Country: None (occurrence: None)
  Receive Date: 20071018
  Receipt Date: 20071010
  Transmission Date: 20080405
  Serious: Yes (Disabling)
  Sender: FDA-Public Use
  Company Number: US-MERCK-0710USA02579

PATIENT
  Sex: Male

DRUGS (9)
  1. STROMECTOL [Suspect]
     Route: 048
  2. SINGULAIR [Concomitant]
     Route: 065
  3. JANUVIA [Concomitant]
     Route: 065
  4. PRIMAXIN [Concomitant]
     Route: 065
  5. LASIX [Concomitant]
     Route: 065
  6. LOPRESSOR [Concomitant]
     Route: 065
  7. LORTAB [Concomitant]
     Route: 065
  8. VANCOMYCIN [Concomitant]
     Route: 065
  9. DILTIAZEM HYDROCHLORIDE [Concomitant]
     Route: 065

REACTIONS (1)
  - OTOTOXICITY [None]
